FAERS Safety Report 7883637-7 (Version None)
Quarter: 2011Q4

REPORT INFORMATION
  Report Type: 
  Country: None (occurrence: None)
  Receive Date: 20111031
  Receipt Date: 20111020
  Transmission Date: 20120403
  Serious: Yes (Death)
  Sender: FDA-Public Use
  Company Number: CIP11002488

PATIENT
  Age: 96 Year
  Sex: Female

DRUGS (1)
  1. ACTONEL WITH CALCIUM (COPACKAGED) [Suspect]
     Dosage: 1 TABLET CYCLIC DAILY, ORAL
     Route: 048
     Dates: start: 20050715

REACTIONS (1)
  - CARDIAC FAILURE [None]
